FAERS Safety Report 15777056 (Version 1)
Quarter: 2018Q4

REPORT INFORMATION
  Report Type: Spontaneous
  Country: US (occurrence: US)
  Receive Date: 20181211
  Receipt Date: 20181211
  Transmission Date: 20190205
  Serious: Yes (Hospitalization)
  Sender: FDA-Public Use
  Company Number: None

PATIENT
  Age: 61 Year
  Sex: Male

DRUGS (17)
  1. BUMEX [Concomitant]
     Active Substance: BUMETANIDE
  2. BUPRENOPHINE [Concomitant]
     Active Substance: BUPRENORPHINE
  3. ADVAIR HFA [Concomitant]
     Active Substance: FLUTICASONE PROPIONATE\SALMETEROL XINAFOATE
  4. FERROUS SULFATE. [Concomitant]
     Active Substance: FERROUS SULFATE
  5. VITAMIN C [Concomitant]
     Active Substance: ASCORBIC ACID
  6. ATROVASTATIN [Concomitant]
     Active Substance: ATORVASTATIN CALCIUM
  7. VOSEVI [Suspect]
     Active Substance: SOFOSBUVIR\VELPATASVIR\VOXILAPREVIR
     Indication: HEPATITIS C
     Route: 048
     Dates: start: 20180425, end: 20180726
  8. NICOTINE. [Concomitant]
     Active Substance: NICOTINE
  9. ALBUTEROL. [Concomitant]
     Active Substance: ALBUTEROL
  10. METOPROLOL. [Concomitant]
     Active Substance: METOPROLOL
  11. TYLENOL [Concomitant]
     Active Substance: ACETAMINOPHEN
  12. COLACE [Concomitant]
     Active Substance: DOCUSATE SODIUM
  13. IRON SULFATE [Concomitant]
     Active Substance: FERROUS SULFATE ANHYDROUS
  14. ADVAIR HFA [Concomitant]
     Active Substance: FLUTICASONE PROPIONATE\SALMETEROL XINAFOATE
  15. TOPROL XL [Concomitant]
     Active Substance: METOPROLOL SUCCINATE
  16. PRILOSEC [Concomitant]
     Active Substance: OMEPRAZOLE MAGNESIUM
  17. ASPIRIN. [Concomitant]
     Active Substance: ASPIRIN

REACTIONS (6)
  - Colitis ischaemic [None]
  - Nausea [None]
  - Colitis [None]
  - Large intestine polyp [None]
  - Haemoglobin decreased [None]
  - Faeces discoloured [None]

NARRATIVE: CASE EVENT DATE: 20180514
